FAERS Safety Report 23640358 (Version 1)
Quarter: 2024Q1

REPORT INFORMATION
  Report Type: Report from Study
  Country: US (occurrence: US)
  Receive Date: 20240317
  Receipt Date: 20240317
  Transmission Date: 20240410
  Serious: Yes (Other)
  Sender: FDA-Public Use
  Company Number: US-ABBVIE-5679027

PATIENT
  Sex: Male

DRUGS (1)
  1. HUMIRA [Suspect]
     Active Substance: ADALIMUMAB
     Indication: Crohn^s disease
     Dosage: FORM STRENGTH: 40 MILLIGRAM, CITRATE FREE
     Route: 058
     Dates: start: 20230801

REACTIONS (5)
  - Oesophageal ulcer [Unknown]
  - Dizziness [Not Recovered/Not Resolved]
  - Oesophageal neoplasm [Unknown]
  - Disturbance in attention [Unknown]
  - Dysphagia [Not Recovered/Not Resolved]
